FAERS Safety Report 8212481-6 (Version None)
Quarter: 2012Q1

REPORT INFORMATION
  Report Type: 
  Country: None (occurrence: None)
  Receive Date: 20120315
  Receipt Date: 20120308
  Transmission Date: 20120608
  Serious: Yes (Other)
  Sender: FDA-Public Use
  Company Number: US-GLAXOSMITHKLINE-A0959810A

PATIENT
  Age: 71 Year
  Sex: Male

DRUGS (7)
  1. SIMVASTATIN [Concomitant]
  2. ADVAIR DISKUS 100/50 [Suspect]
     Indication: CHRONIC OBSTRUCTIVE PULMONARY DISEASE
     Dosage: 1PUFF TWICE PER DAY
     Route: 055
     Dates: start: 20110701
  3. TOPROL-XL [Concomitant]
  4. ALENDRONATE SODIUM [Concomitant]
  5. PROAIR HFA [Concomitant]
  6. ALBUTEROL [Concomitant]
  7. PROZAC [Concomitant]

REACTIONS (5)
  - DISABILITY [None]
  - FATIGUE [None]
  - DYSPNOEA [None]
  - WHEEZING [None]
  - IMPAIRED WORK ABILITY [None]
